FAERS Safety Report 5802415-3 (Version None)
Quarter: 2008Q3

REPORT INFORMATION
  Report Type: 
  Country: None (occurrence: None)
  Receive Date: 20080707
  Receipt Date: 20080703
  Transmission Date: 20090109
  Serious: Yes (Hospitalization)
  Sender: FDA-Public Use
  Company Number: US-GILEAD-2008-0016497

PATIENT
  Sex: Female

DRUGS (3)
  1. LETAIRIS [Suspect]
     Indication: PULMONARY HYPERTENSION
     Route: 048
     Dates: start: 20080225, end: 20080505
  2. CELLCEPT [Concomitant]
  3. HUMIRA [Concomitant]

REACTIONS (4)
  - DYSPNOEA [None]
  - FLUID RETENTION [None]
  - HEPATIC ENZYME INCREASED [None]
  - MICTURITION DISORDER [None]
